FAERS Safety Report 12094948 (Version 1)
Quarter: 2016Q1

REPORT INFORMATION
  Report Type: Spontaneous
  Country: DE (occurrence: DE)
  Receive Date: 20160219
  Receipt Date: 20160219
  Transmission Date: 20160526
  Serious: Yes (Hospitalization)
  Sender: FDA-Public Use
  Company Number: DE-PERNIX THERAPEUTICS-2015PT000156

PATIENT

DRUGS (2)
  1. CYANOCOBALAMIN W/FOLIC ACID [Concomitant]
  2. KEIMAX [Suspect]
     Active Substance: CEFTIBUTEN
     Indication: OTITIS MEDIA
     Dosage: UNK
     Route: 048
     Dates: start: 20150622, end: 20150624

REACTIONS (4)
  - Headache [Not Recovered/Not Resolved]
  - Nausea [Not Recovered/Not Resolved]
  - Diarrhoea [Unknown]
  - Vomiting [Not Recovered/Not Resolved]

NARRATIVE: CASE EVENT DATE: 201506
